FAERS Safety Report 4382190-2 (Version None)
Quarter: 2004Q2

REPORT INFORMATION
  Report Type: 
  Country: None (occurrence: None)
  Receive Date: 20040615
  Receipt Date: 20040602
  Transmission Date: 20050107
  Serious: Yes (Hospitalization, Other)
  Sender: FDA-Public Use
  Company Number: 2004037145

PATIENT
  Age: 74 Year
  Sex: Female

DRUGS (6)
  1. ZITHROMAX [Suspect]
     Indication: PYREXIA
     Dosage: 1 IN 1 D ORAL
     Route: 048
     Dates: start: 20020112, end: 20020116
  2. LEVOTHYROXINE SODIUM [Concomitant]
  3. ASPIRIN [Concomitant]
  4. MULTIVITAMIN [Concomitant]
  5. GLUCOSAMINE [Concomitant]
  6. CHONDROITIN SULFATE [Concomitant]

REACTIONS (6)
  - BIOPSY THYROID GLAND ABNORMAL [None]
  - BLOOD PRESSURE DIASTOLIC DECREASED [None]
  - BLOOD PRESSURE INCREASED [None]
  - DYSGEUSIA [None]
  - EX-SMOKER [None]
  - UNEXPECTED THERAPEUTIC DRUG EFFECT [None]
